FAERS Safety Report 14995428 (Version 1)
Quarter: 2018Q2

REPORT INFORMATION
  Report Type: Spontaneous
  Country: US (occurrence: US)
  Receive Date: 20180611
  Receipt Date: 20180611
  Transmission Date: 20180711
  Serious: Yes (Other)
  Sender: FDA-Public Use
  Company Number: US-SA-2018SA150390

PATIENT
  Age: 51 Year
  Sex: Female
  Weight: 49.89 kg

DRUGS (5)
  1. ADRIAMYCIN [DOXORUBICIN] [Concomitant]
     Indication: BREAST CANCER
  2. NEOSAR [Concomitant]
     Active Substance: CYCLOPHOSPHAMIDE
  3. TAXOTERE [Suspect]
     Active Substance: DOCETAXEL
     Indication: BREAST CANCER FEMALE
     Dosage: 75 ML, Q3W
     Route: 042
     Dates: start: 20031017, end: 20031017
  4. TAXOTERE [Suspect]
     Active Substance: DOCETAXEL
     Dosage: 75 ML, Q3W
     Route: 042
     Dates: start: 200401, end: 200401
  5. XANAX [Concomitant]
     Active Substance: ALPRAZOLAM
     Dosage: UNK
     Dates: start: 1991

REACTIONS (2)
  - Psychological trauma [Unknown]
  - Alopecia [Recovering/Resolving]

NARRATIVE: CASE EVENT DATE: 200407
